FAERS Safety Report 6593787-3 (Version None)
Quarter: 2010Q1

REPORT INFORMATION
  Report Type: 
  Country: None (occurrence: None)
  Receive Date: 20100222
  Receipt Date: 20100215
  Transmission Date: 20100710
  Serious: Yes (Death)
  Sender: FDA-Public Use
  Company Number: JP-BAYER-200811339BYL

PATIENT
  Age: 59 Year
  Sex: Male
  Weight: 48 kg

DRUGS (13)
  1. NEXAVAR [Suspect]
     Indication: RENAL CELL CARCINOMA
     Dosage: TOTAL DAILY DOSE: 800 MG  UNIT DOSE: 200 MG
     Route: 048
     Dates: start: 20080428, end: 20080504
  2. NEXAVAR [Suspect]
     Dosage: UNIT DOSE: 200 MG
     Route: 048
     Dates: start: 20080505, end: 20080513
  3. NEXAVAR [Suspect]
     Dosage: UNIT DOSE: 200 MG
     Route: 048
     Dates: start: 20080514, end: 20080623
  4. LENDORMIN [Concomitant]
     Indication: INSOMNIA
     Dosage: TOTAL DAILY DOSE: 0.25 MG
     Route: 048
  5. LAMISIL [Concomitant]
     Indication: TINEA INFECTION
     Dosage: TOTAL DAILY DOSE: 125 MG
     Route: 048
     Dates: start: 20080512, end: 20080623
  6. FERO-GRADUMET [Concomitant]
     Indication: ANAEMIA
     Route: 048
     Dates: start: 20080513, end: 20080623
  7. ZOLOFT [Concomitant]
     Indication: INSOMNIA
     Dosage: TOTAL DAILY DOSE: 25 MG
     Route: 048
     Dates: start: 20080514, end: 20080623
  8. PARIET [Concomitant]
     Indication: PROPHYLAXIS AGAINST GASTROINTESTINAL ULCER
     Dosage: TOTAL DAILY DOSE: 10 MG
     Route: 048
     Dates: start: 20080528, end: 20080623
  9. HUMULIN R [Concomitant]
     Indication: DIABETES MELLITUS
     Dosage: 2-3TIMES/DAY
     Route: 058
  10. OMEPRAL [Concomitant]
     Dosage: TOTAL DAILY DOSE: 20 MG
     Route: 042
     Dates: start: 20080504, end: 20080527
  11. CEFMETAZON [Concomitant]
     Dosage: TOTAL DAILY DOSE: 1 G
     Route: 042
     Dates: start: 20080530, end: 20080602
  12. VOLTAREN [Concomitant]
     Indication: PAIN
     Route: 054
  13. LOXONIN [Concomitant]
     Indication: PAIN
     Dosage: TOTAL DAILY DOSE: 120 MG  UNIT DOSE: 60 MG
     Route: 048
     Dates: end: 20080618

REACTIONS (4)
  - ANAEMIA [None]
  - GASTROINTESTINAL HAEMORRHAGE [None]
  - HEPATIC FUNCTION ABNORMAL [None]
  - SEPTIC SHOCK [None]
